FAERS Safety Report 4641637-4 (Version None)
Quarter: 2005Q2

REPORT INFORMATION
  Report Type: 
  Country: None (occurrence: None)
  Receive Date: 20050420
  Receipt Date: 20050404
  Transmission Date: 20051028
  Serious: Yes (Life-Threatening, Hospitalization)
  Sender: FDA-Public Use
  Company Number: 2005-DE-01292GD

PATIENT
  Age: 71 Year
  Sex: Female

DRUGS (5)
  1. IPRATROPIUM BROMIDE [Suspect]
     Indication: BRONCHIAL INFECTION
     Dosage: 2 MG IH
     Route: 055
     Dates: start: 20020201
  2. FLUPHENAZINE (FLUPHENAZINE) (NR) [Suspect]
     Indication: PSYCHOTIC DISORDER
     Dosage: 75 MG IM
     Route: 030
  3. AMOXICILLIN / CLAVULANIC [Concomitant]
  4. ACID (AMOXI-CLAVULANICO) (NR) [Concomitant]
  5. SALBUTAMOL  (SALBUTAMOL SULPHATE) [Concomitant]

REACTIONS (4)
  - ABDOMINAL DISTENSION [None]
  - ACUTE RESPIRATORY FAILURE [None]
  - DRUG INTERACTION [None]
  - IMPAIRED GASTRIC EMPTYING [None]
